FAERS Safety Report 9959565 (Version 1)
Quarter: 2014Q1

REPORT INFORMATION
  Report Type: Spontaneous
  Country: US (occurrence: None)
  Receive Date: 20140228
  Receipt Date: 20140228
  Transmission Date: 20141002
  Serious: Yes (Other)
  Sender: FDA-Public Use
  Company Number: None

PATIENT
  Age: 70 Year
  Sex: Male

DRUGS (3)
  1. LETROZOLE [Suspect]
     Route: 048
     Dates: start: 20130920
  2. DIOVAN [Concomitant]
  3. ARICEPT [Concomitant]

REACTIONS (5)
  - Dementia Alzheimer^s type [None]
  - Dysphagia [None]
  - Lethargy [None]
  - Speech disorder [None]
  - Abasia [None]
